FAERS Safety Report 5034875-2 (Version None)
Quarter: 2006Q2

REPORT INFORMATION
  Report Type: 
  Country: None (occurrence: None)
  Receive Date: 20060627
  Receipt Date: 20060531
  Transmission Date: 20061013
  Serious: Yes (Life-Threatening, Hospitalization, Disabling, Other)
  Sender: FDA-Public Use
  Company Number: PHBS2006NO08150

PATIENT
  Age: 21 Year
  Sex: Male

DRUGS (3)
  1. CLOMIPRAMINE HCL [Concomitant]
     Indication: ANXIETY
     Route: 065
  2. BETA-2 AGONIST [Concomitant]
     Indication: ASTHMA
     Route: 065
  3. RITALIN [Suspect]
     Indication: ATTENTION DEFICIT/HYPERACTIVITY DISORDER
     Dates: start: 20030101, end: 20040101

REACTIONS (2)
  - CARDIAC FAILURE [None]
  - CARDIOMYOPATHY [None]
